FAERS Safety Report 14311787 (Version 1)
Quarter: 2017Q4

REPORT INFORMATION
  Report Type: Spontaneous
  Country: RU (occurrence: RU)
  Receive Date: 20171221
  Receipt Date: 20171221
  Transmission Date: 20180321
  Serious: Yes (Hospitalization, Other)
  Sender: FDA-Public Use
  Company Number: RU-ASTRAZENECA-2017SF29644

PATIENT
  Age: 49 Year
  Sex: Female
  Weight: 104 kg

DRUGS (5)
  1. DIABETON [Concomitant]
     Active Substance: GLICLAZIDE
  2. METOPROLOL. [Concomitant]
     Active Substance: METOPROLOL
  3. SIOFOR [Concomitant]
     Active Substance: METFORMIN HYDROCHLORIDE
  4. FORXIGA [Suspect]
     Active Substance: DAPAGLIFLOZIN
     Indication: TYPE 2 DIABETES MELLITUS
     Route: 048
  5. PRESTARIUM [Concomitant]
     Active Substance: PERINDOPRIL

REACTIONS (1)
  - Blood pressure increased [Recovered/Resolved]

NARRATIVE: CASE EVENT DATE: 20171214
